FAERS Safety Report 19120006 (Version 2)
Quarter: 2023Q4

REPORT INFORMATION
  Report Type: Report from Study
  Country: US (occurrence: US)
  Receive Date: 20210412
  Receipt Date: 20231227
  Transmission Date: 20240109
  Serious: Yes (Death, Other)
  Sender: FDA-Public Use
  Company Number: US-ACADIA PHARMACEUTICALS INC.-ACA-2021-PIM-001073

PATIENT
  Age: 93 Year
  Sex: Male

DRUGS (2)
  1. NUPLAZID [Suspect]
     Active Substance: PIMAVANSERIN TARTRATE
     Indication: Psychotic disorder
     Dosage: 10 MILLIGRAM, BID
     Route: 048
     Dates: start: 202010
  2. NUPLAZID [Suspect]
     Active Substance: PIMAVANSERIN TARTRATE
     Indication: Parkinson^s disease
     Dosage: 10 MILLIGRAM, QD
     Route: 048

REACTIONS (4)
  - Death [Fatal]
  - Fatigue [Unknown]
  - Restlessness [Unknown]
  - Underdose [Unknown]

NARRATIVE: CASE EVENT DATE: 20201001
